FAERS Safety Report 6230215-1 (Version None)
Quarter: 2009Q2

REPORT INFORMATION
  Report Type: 
  Country: None (occurrence: None)
  Receive Date: 20090615
  Receipt Date: 20090602
  Transmission Date: 20091009
  Serious: Yes (Other)
  Sender: FDA-Public Use
  Company Number: CA-MYLANLABS-2009S1009716

PATIENT
  Age: 15 Year
  Sex: Female
  Weight: 48 kg

DRUGS (7)
  1. OLANZAPINE [Interacting]
     Indication: ANOREXIA NERVOSA
     Dosage: 5MG EVERY NIGHT
  2. FLUOXETINE HCL [Suspect]
     Indication: ANOREXIA NERVOSA
     Dosage: 20 MG/DAY
  3. FLUOXETINE HCL [Interacting]
     Dosage: 40 MG/DAY
  4. FLUOXETINE HCL [Interacting]
     Dosage: 60 MG/DAY
  5. RISPERIDONE [Interacting]
     Indication: ANOREXIA NERVOSA
     Dosage: 0.25 MG/DAY
  6. RISPERIDONE [Interacting]
     Dosage: 0.5 MG/DAY
  7. RISPERIDONE [Interacting]
     Dosage: 0.75 MG/DAY

REACTIONS (2)
  - DRUG INTERACTION [None]
  - ELECTROCARDIOGRAM QT PROLONGED [None]
